FAERS Safety Report 4851377-4 (Version None)
Quarter: 2005Q4

REPORT INFORMATION
  Report Type: 
  Country: None (occurrence: None)
  Receive Date: 20051212
  Receipt Date: 20051202
  Transmission Date: 20060501
  Serious: Yes (Hospitalization)
  Sender: FDA-Public Use
  Company Number: BE-ABBOTT-05P-013-0318771-00

PATIENT
  Sex: Female

DRUGS (11)
  1. HUMIRA [Suspect]
     Indication: RHEUMATOID ARTHRITIS
     Route: 058
     Dates: start: 20050706, end: 20051004
  2. METHYLPREDNISOLONE [Concomitant]
     Indication: RHEUMATOID ARTHRITIS
     Dates: start: 19980101
  3. IRBESARTAN [Concomitant]
     Indication: HYPERTENSION
  4. LEVOTHYROXINE SODIUM [Concomitant]
     Indication: HYPOTHYROIDISM
  5. SIPRALEXA [Concomitant]
     Indication: DEPRESSION
  6. CALCIUM CARBONATE [Concomitant]
     Indication: OSTEOPENIA
  7. ASPIRIN [Concomitant]
     Indication: CARDIOVASCULAR EVENT PROPHYLAXIS
  8. COLECALCIFEROL [Concomitant]
     Indication: OSTEOPENIA
  9. PARACETAMOL [Concomitant]
     Indication: PAIN
  10. TRAMADOL HYDROCHLORIDE [Concomitant]
     Indication: PAIN
  11. INDAPAMIDE [Concomitant]
     Indication: HYPERTENSION

REACTIONS (3)
  - INFECTED SKIN ULCER [None]
  - PSEUDOMONAS INFECTION [None]
  - SKIN LESION [None]
